FAERS Safety Report 8482420-1 (Version None)
Quarter: 2012Q3

REPORT INFORMATION
  Report Type: 
  Country: None (occurrence: None)
  Receive Date: 20120702
  Receipt Date: 20120621
  Transmission Date: 20120928
  Serious: Yes (Congenital Anomaly)
  Sender: FDA-Public Use
  Company Number: US-GLAXOSMITHKLINE-A0948275A

PATIENT
  Sex: Female

DRUGS (2)
  1. PAROXETINE HCL [Suspect]
     Indication: ANXIETY
     Route: 064
  2. PAXIL [Suspect]
     Indication: ANXIETY
     Route: 064

REACTIONS (4)
  - FOETAL EXPOSURE DURING PREGNANCY [None]
  - PERSISTENT FOETAL CIRCULATION [None]
  - HYPOPLASTIC LEFT HEART SYNDROME [None]
  - CARDIAC DISORDER [None]
